FAERS Safety Report 5738621-6 (Version None)
Quarter: 2008Q2

REPORT INFORMATION
  Report Type: 
  Country: None (occurrence: None)
  Receive Date: 20080515
  Receipt Date: 20080507
  Transmission Date: 20081010
  Serious: Yes (Other)
  Sender: FDA-Public Use
  Company Number: PHBS1996AU06304

PATIENT
  Age: 48 Year
  Sex: Male

DRUGS (1)
  1. FAMVIR [Suspect]
     Route: 048
     Dates: start: 19960122

REACTIONS (5)
  - ARTHRALGIA [None]
  - DEPRESSION [None]
  - FATIGUE [None]
  - HEADACHE [None]
  - LETHARGY [None]
